FAERS Safety Report 10069126 (Version 2)
Quarter: 2015Q3

REPORT INFORMATION
  Report Type: Spontaneous
  Country: IR (occurrence: IR)
  Receive Date: 20140409
  Receipt Date: 20150804
  Transmission Date: 20151125
  Serious: Yes (Death, Hospitalization, Other)
  Sender: FDA-Public Use
  Company Number: IR-MILLENNIUM PHARMACEUTICALS, INC.-2014TUS002657

PATIENT

DRUGS (1)
  1. COLCHICINE. [Suspect]
     Active Substance: COLCHICINE
     Indication: RHEUMATIC DISORDER
     Dosage: 1 MG, QD
     Route: 065

REACTIONS (16)
  - Nausea [Unknown]
  - Asthenia [Unknown]
  - Intentional overdose [Unknown]
  - Hypotension [Unknown]
  - Bradycardia [Fatal]
  - Dehydration [Unknown]
  - Abdominal pain [Unknown]
  - Loss of consciousness [Unknown]
  - Abdominal tenderness [Unknown]
  - Off label use [Unknown]
  - Cardiac arrest [Fatal]
  - Pallor [Unknown]
  - Vomiting [Unknown]
  - Cyanosis [Unknown]
  - Dyspnoea [Unknown]
  - Metabolic acidosis [Unknown]
